FAERS Safety Report 4979163-5 (Version None)
Quarter: 2006Q2

REPORT INFORMATION
  Report Type: 
  Country: None (occurrence: None)
  Receive Date: 20060418
  Receipt Date: 20060330
  Transmission Date: 20061013
  Serious: Yes (Other)
  Sender: FDA-Public Use
  Company Number: DE200601001222

PATIENT
  Age: 70 Year
  Sex: Male

DRUGS (1)
  1. FLUOXETINE HYDROCHLORIDE [Suspect]
     Dosage: DAILY (1/D),  ORAL
     Route: 048
     Dates: start: 20051209, end: 20051216

REACTIONS (7)
  - AGITATION [None]
  - ANXIETY [None]
  - CONFUSIONAL STATE [None]
  - DEPERSONALISATION [None]
  - DYSPHAGIA [None]
  - PANIC ATTACK [None]
  - PHARYNGITIS [None]
